FAERS Safety Report 25860384 (Version 1)
Quarter: 2025Q3

REPORT INFORMATION
  Report Type: Spontaneous
  Country: GB (occurrence: GB)
  Receive Date: 20250929
  Receipt Date: 20250929
  Transmission Date: 20251021
  Serious: Yes (Disabling)
  Sender: SUNOVION
  Company Number: None

PATIENT
  Age: 35 Year
  Sex: Female
  Weight: 51 kg

DRUGS (3)
  1. ESTRADIOL\NORETHINDRONE ACETATE\RELUGOLIX [Suspect]
     Active Substance: ESTRADIOL\NORETHINDRONE ACETATE\RELUGOLIX
     Indication: Endometriosis
     Dates: start: 20250906, end: 20250909
  2. TRAMADOL [Concomitant]
     Active Substance: TRAMADOL
     Indication: Endometriosis
  3. NAPROXEN [Concomitant]
     Active Substance: NAPROXEN
     Indication: Endometriosis

REACTIONS (2)
  - Palpitations [Recovered/Resolved]
  - Migraine [Recovered/Resolved]

NARRATIVE: CASE EVENT DATE: 20250906
